FAERS Safety Report 8763412 (Version 2)
Quarter: 2012Q4

REPORT INFORMATION
  Report Type: 
  Country: JP (occurrence: JP)
  Receive Date: 20120831
  Receipt Date: 20121221
  Transmission Date: 20130627
  Serious: Yes (Hospitalization, Other)
  Sender: FDA-Public Use
  Company Number: JP-009507513-1208JPN011816

PATIENT
  Age: 58 Year
  Sex: Male
  Weight: 55 kg

DRUGS (12)
  1. PEGINTRON [Suspect]
     Indication: CHRONIC HEPATITIS C
     Dosage: 1.5 ?g/kg/week
     Route: 058
     Dates: start: 20120418, end: 20120522
  2. PEGINTRON [Suspect]
     Dosage: 1.5 ?g/kg/week
     Route: 058
     Dates: start: 20120607, end: 20120624
  3. REBETOL [Suspect]
     Indication: CHRONIC HEPATITIS C
     Dosage: 600 mg, qd
     Route: 048
     Dates: start: 20120418, end: 20120508
  4. REBETOL [Suspect]
     Dosage: 400 mg, qd
     Route: 048
     Dates: start: 20120509, end: 20120522
  5. REBETOL [Suspect]
     Dosage: 400 mg, qd
     Route: 048
     Dates: start: 20120607, end: 20120624
  6. TELAVIC [Suspect]
     Indication: CHRONIC HEPATITIS C
     Dosage: 2250 mg, qd
     Route: 048
     Dates: start: 20120418, end: 20120522
  7. URSO [Concomitant]
     Indication: CHRONIC HEPATITIS C
     Dosage: formulation: POR
     Route: 048
  8. TAKEPRON [Concomitant]
     Indication: PROPHYLAXIS
     Dosage: Formulation: POR
     Route: 048
     Dates: start: 20120418
  9. LOBU [Concomitant]
     Indication: PROPHYLAXIS
     Dosage: UNK, prn
     Route: 048
     Dates: start: 20120418
  10. LOBU [Concomitant]
     Dosage: 60 mg, qd
     Route: 048
     Dates: end: 20120613
  11. PRIMPERAN [Concomitant]
     Indication: PROPHYLAXIS
     Dosage: 5 mg, qd
     Route: 048
     Dates: end: 20120531
  12. ADONA [Concomitant]
     Indication: PROPHYLAXIS
     Dosage: 90 mg, qd
     Dates: end: 20120620

REACTIONS (4)
  - Nausea [Recovering/Resolving]
  - Decreased appetite [Recovering/Resolving]
  - Drug eruption [Recovering/Resolving]
  - White blood cell count decreased [Recovered/Resolved]
